FAERS Safety Report 5472217-9 (Version None)
Quarter: 2007Q3

REPORT INFORMATION
  Report Type: 
  Country: None (occurrence: None)
  Receive Date: 20070926
  Receipt Date: 20070917
  Transmission Date: 20080115
  Serious: Yes (Death, Hospitalization, Other)
  Sender: FDA-Public Use
  Company Number: 2007US002223

PATIENT
  Age: 24 Year
  Sex: Male

DRUGS (5)
  1. PROGRAF [Suspect]
     Indication: HEART TRANSPLANT
     Dosage: 0.5 MG, UID/QD; 2 MG, BID; 1 MG, BID; 2 MG, BID; 5 MG, QID,
  2. SIROLIMUS (SIROLIMUS) [Concomitant]
  3. DACLIZUMAB (DACLIZUMAB) [Concomitant]
  4. CELLCEPT [Concomitant]
  5. PREDNISONE TAB [Concomitant]

REACTIONS (35)
  - ACUTE PRERENAL FAILURE [None]
  - ASCITES [None]
  - BILIARY TRACT DISORDER [None]
  - BRONCHIAL NEOPLASM [None]
  - BRONCHOPNEUMONIA [None]
  - BRONCHOSCOPY ABNORMAL [None]
  - CARDIAC CIRRHOSIS [None]
  - CARDIAC VALVE VEGETATION [None]
  - CLOSTRIDIUM DIFFICILE COLITIS [None]
  - CYTOMEGALOVIRUS COLITIS [None]
  - DERMATITIS HERPETIFORMIS [None]
  - ENDOCARDITIS [None]
  - ENTEROCOCCAL SEPSIS [None]
  - FUNGAEMIA [None]
  - GASTROINTESTINAL NEOPLASM [None]
  - HEPATIC FIBROSIS [None]
  - HEPATIC NEOPLASM [None]
  - HEPATOSPLENOMEGALY [None]
  - HYPOPERFUSION [None]
  - LEIOMYOSARCOMA [None]
  - LUNG DISORDER [None]
  - LUNG INFILTRATION [None]
  - LUNG NEOPLASM [None]
  - MULTI-ORGAN FAILURE [None]
  - NECROSIS [None]
  - NEOPLASM [None]
  - PANCREATIC NEOPLASM [None]
  - PANCYTOPENIA [None]
  - PLEURAL EFFUSION [None]
  - POLYP [None]
  - RENAL FAILURE [None]
  - RESPIRATORY FAILURE [None]
  - SEPSIS [None]
  - SMOOTH MUSCLE CELL NEOPLASM [None]
  - UROSEPSIS [None]
